FAERS Safety Report 8573354-2 (Version None)
Quarter: 2012Q2

REPORT INFORMATION
  Report Type: 
  Country: None (occurrence: None)
  Receive Date: 20120423
  Receipt Date: 20110411
  Transmission Date: 20120825
  Serious: Yes (Other)
  Sender: FDA-Public Use
  Company Number: FK201100688

PATIENT
  Age: 41 Year
  Sex: Male
  Weight: 96.6 kg

DRUGS (10)
  1. METOPROLOL TARTRATE [Concomitant]
  2. DOFETILIDE [Concomitant]
  3. FLUTICASONE PROPIONATE [Concomitant]
  4. ASPIRIN [Concomitant]
  5. AMPHETAMINES [Concomitant]
  6. AMLODIPINE [Concomitant]
  7. HEPARIN SODIUM [Suspect]
     Indication: CATHETERISATION CARDIAC
     Dosage: HR
  8. ZOLPIDEM [Concomitant]
  9. ALPRAZOLAM [Concomitant]
  10. OMEPRAZOLE [Concomitant]

REACTIONS (2)
  - DRUG EFFECT DECREASED [None]
  - THROMBOSIS [None]
